FAERS Safety Report 19575696 (Version 4)
Quarter: 2022Q1

REPORT INFORMATION
  Report Type: Spontaneous
  Country: US (occurrence: US)
  Receive Date: 20210719
  Receipt Date: 20220221
  Transmission Date: 20220423
  Serious: No
  Sender: FDA-Public Use
  Company Number: US-SA-SAC20210714000711

PATIENT
  Age: 54 Year
  Sex: Male
  Weight: 68.03 kg

DRUGS (1)
  1. CERDELGA [Suspect]
     Active Substance: ELIGLUSTAT
     Indication: Gaucher^s disease
     Dosage: 84 MG, BID
     Route: 048
     Dates: start: 20181113

REACTIONS (2)
  - Weight fluctuation [Unknown]
  - Product dose omission in error [Unknown]
